FAERS Safety Report 21944008 (Version 2)
Quarter: 2023Q1

REPORT INFORMATION
  Report Type: Spontaneous
  Country: DE (occurrence: DE)
  Receive Date: 20230202
  Receipt Date: 20230203
  Transmission Date: 20230418
  Serious: Yes (Other)
  Sender: FDA-Public Use
  Company Number: DE-EUSA PHARMA (UK) LIMITED-2023DE000044

PATIENT

DRUGS (1)
  1. SYLVANT [Suspect]
     Active Substance: SILTUXIMAB
     Indication: Castleman^s disease
     Dosage: UNKNOWN
     Route: 065

REACTIONS (3)
  - Cerebral ischaemia [Unknown]
  - Cerebral artery embolism [Unknown]
  - Sigmoid sinus thrombosis [Unknown]
